FAERS Safety Report 24262561 (Version 2)
Quarter: 2024Q3

REPORT INFORMATION
  Report Type: Spontaneous
  Country: JP (occurrence: JP)
  Receive Date: 20240829
  Receipt Date: 20240909
  Transmission Date: 20241016
  Serious: Yes (Other)
  Sender: BAXTER
  Company Number: JP-BAXTERJP-2024BAX023431AA

PATIENT
  Age: 75 Year
  Sex: Female

DRUGS (16)
  1. DOXIL [Suspect]
     Active Substance: DOXORUBICIN HYDROCHLORIDE
     Indication: Adenocarcinoma
     Dosage: SINGLE AGENT CHEMOTHERAPY, FIVE CYCLES LIPOSOMAL DOXORUBICIN (PLD) THERAPY WERE ADMINISTERED AS THE
     Route: 065
  2. DOXIL [Suspect]
     Active Substance: DOXORUBICIN HYDROCHLORIDE
     Indication: Ovarian cancer stage I
  3. DOCETAXEL [Suspect]
     Active Substance: DOCETAXEL\DOCETAXEL ANHYDROUS
     Indication: Adenocarcinoma
     Dosage: SIX CYCLES OF TC THERAPY WERE PERFORMED WITH THE AIM OF INDUCING REMISSION, ACHIEVING A COMPLETE RES
     Route: 065
  4. DOCETAXEL [Suspect]
     Active Substance: DOCETAXEL\DOCETAXEL ANHYDROUS
     Indication: Ovarian cancer stage I
     Dosage: TC+BEV THERAPY WAS INITIATED
     Route: 065
  5. CYCLOPHOSPHAMIDE [Suspect]
     Active Substance: CYCLOPHOSPHAMIDE
     Indication: Adenocarcinoma
     Dosage: SIX CYCLES OF TC THERAPY WERE PERFORMED WITH THE AIM OF INDUCING REMISSION, ACHIEVING A COMPLETE RES
     Route: 065
  6. CYCLOPHOSPHAMIDE [Suspect]
     Active Substance: CYCLOPHOSPHAMIDE
     Indication: Ovarian cancer stage I
     Dosage: TC+BEV THERAPY WAS INITIATED
     Route: 065
  7. OLAPARIB [Suspect]
     Active Substance: OLAPARIB
     Indication: Adenocarcinoma
     Dosage: THIRTEEN CYCLES OF THE PAOLA REGIMEN WERE PERFORMED
     Route: 065
  8. OLAPARIB [Suspect]
     Active Substance: OLAPARIB
     Indication: Ovarian cancer
  9. BEVACIZUMAB [Suspect]
     Active Substance: BEVACIZUMAB
     Indication: Adenocarcinoma
     Dosage: THIRTEEN CYCLES OF THE PAOLA REGIMEN WERE PERFORMED
     Route: 065
  10. BEVACIZUMAB [Suspect]
     Active Substance: BEVACIZUMAB
     Indication: Ovarian cancer stage I
     Dosage: TC+BEV THERAPY WAS INITIATED
     Route: 065
  11. CARBOPLATIN [Suspect]
     Active Substance: CARBOPLATIN
     Indication: Adenocarcinoma
     Dosage: DURING THE SECOND CYCLE (THE EIGHTH CYCLE OF CARBOPLATIN)
     Route: 065
  12. CARBOPLATIN [Suspect]
     Active Substance: CARBOPLATIN
     Indication: Ovarian cancer stage I
  13. GEMCITABINE [Suspect]
     Active Substance: GEMCITABINE
     Indication: Adenocarcinoma
     Dosage: FOUR CYCLES OF GEM THERAPY AS THE THIRD REGIMEN
     Route: 065
  14. GEMCITABINE [Suspect]
     Active Substance: GEMCITABINE
     Indication: Ovarian cancer
  15. IRINOTECAN [Suspect]
     Active Substance: IRINOTECAN
     Indication: Adenocarcinoma
     Dosage: CPT-11 THERAPY AS THE FOURTH REGIMEN
     Route: 065
  16. IRINOTECAN [Suspect]
     Active Substance: IRINOTECAN
     Indication: Ovarian cancer

REACTIONS (3)
  - Myelodysplastic syndrome [Unknown]
  - Pneumonia bacterial [Unknown]
  - Acute myeloid leukaemia [Unknown]
